FAERS Safety Report 8853650 (Version 3)
Quarter: 2013Q4

REPORT INFORMATION
  Report Type: Spontaneous
  Country: US (occurrence: None)
  Receive Date: 20120426
  Receipt Date: 20131226
  Transmission Date: 20140711
  Serious: Yes (Other)
  Sender: FDA-Public Use
  Company Number: PHEH2012US001235

PATIENT
  Age: 62 Year
  Sex: Female

DRUGS (1)
  1. GILENYA [Suspect]
     Indication: RELAPSING-REMITTING MULTIPLE SCLEROSIS
     Route: 048
     Dates: start: 20111202

REACTIONS (7)
  - Fatigue [None]
  - Visual impairment [None]
  - Nausea [None]
  - Myalgia [None]
  - Somnolence [None]
  - Headache [None]
  - Dizziness [None]
